FAERS Safety Report 4279528-3 (Version None)
Quarter: 2004Q1

REPORT INFORMATION
  Report Type: 
  Country: None (occurrence: None)
  Receive Date: 20040123
  Receipt Date: 20040114
  Transmission Date: 20041129
  Serious: Yes (Death)
  Sender: FDA-Public Use
  Company Number: 2004002968

PATIENT
  Age: 50 Year
  Sex: Male

DRUGS (3)
  1. CHLORPROPAMIDE [Suspect]
     Indication: DIABETES MELLITUS
     Dosage: ORAL
     Route: 048
     Dates: start: 20010101, end: 20031218
  2. DOXAZOSIN MESYLATE [Suspect]
     Indication: BENIGN PROSTATIC HYPERPLASIA
     Dosage: 4 MG (DAILY), ORAL
     Route: 048
     Dates: start: 20030701, end: 20031218
  3. ANTIHYPERTENSIVES [Concomitant]

REACTIONS (2)
  - HYPERTENSION [None]
  - MYOCARDIAL INFARCTION [None]
